FAERS Safety Report 24700619 (Version 1)
Quarter: 2024Q4

REPORT INFORMATION
  Report Type: Spontaneous
  Country: CA (occurrence: CA)
  Receive Date: 20241205
  Receipt Date: 20241205
  Transmission Date: 20250114
  Serious: Yes (Other)
  Sender: ACCORD
  Company Number: CA-Accord-458280

PATIENT
  Age: 37 Year
  Sex: Male
  Weight: 113.4 kg

DRUGS (2)
  1. TADALAFIL [Suspect]
     Active Substance: TADALAFIL
     Indication: Penis disorder
     Dosage: ONE TAKEN
     Dates: start: 20241117
  2. CITRULLINE [Concomitant]
     Active Substance: CITRULLINE

REACTIONS (9)
  - Flushing [Recovered/Resolved]
  - Nasal congestion [Recovered/Resolved]
  - Vision blurred [Recovered/Resolved]
  - Tinnitus [Not Recovered/Not Resolved]
  - Night sweats [Recovered/Resolved]
  - Paraesthesia [Not Recovered/Not Resolved]
  - Erectile dysfunction [Recovering/Resolving]
  - Headache [Recovered/Resolved]
  - Off label use [Unknown]

NARRATIVE: CASE EVENT DATE: 20241117
